FAERS Safety Report 15555199 (Version 1)
Quarter: 2018Q4

REPORT INFORMATION
  Report Type: Spontaneous
  Country: US (occurrence: US)
  Receive Date: 20181022
  Receipt Date: 20181022
  Transmission Date: 20190205
  Serious: No
  Sender: FDA-Public Use
  Company Number: None

PATIENT
  Age: 43 Year
  Sex: Female

DRUGS (1)
  1. ENBREL [Suspect]
     Active Substance: ETANERCEPT
     Dosage: ?          OTHER FREQUENCY:OTHER;?
     Route: 058
     Dates: start: 201709

REACTIONS (5)
  - Nasopharyngitis [None]
  - Sinusitis [None]
  - Nasal congestion [None]
  - Paranasal sinus discomfort [None]
  - Rhinorrhoea [None]

NARRATIVE: CASE EVENT DATE: 20181020
